FAERS Safety Report 8989002 (Version 2)
Quarter: 2013Q1

REPORT INFORMATION
  Report Type: Spontaneous
  Country: CA (occurrence: None)
  Receive Date: 20121218
  Receipt Date: 20130115
  Transmission Date: 20140127
  Serious: Yes (Life-Threatening, Hospitalization)
  Sender: FDA-Public Use
  Company Number: VAL_01181_2012

PATIENT
  Sex: Male

DRUGS (8)
  1. LOPRESSOR (METOPROLOL TARTRATE) [Suspect]
     Indication: HYPERTENSION
     Route: 048
     Dates: start: 20120508, end: 20120912
  2. LOPRESSOR (METOPROLOL TARTRATE) [Suspect]
     Indication: ATRIAL FIBRILLATION
     Route: 048
     Dates: start: 20120508, end: 20120912
  3. TASIGNA [Suspect]
     Indication: CHRONIC MYELOID LEUKAEMIA
     Route: 048
  4. PROPAFENONE [Suspect]
     Indication: PRODUCT USED FOR UNKNOWN INDICATION
     Dosage: (DF)
     Dates: start: 201011
  5. ASA [Concomitant]
  6. PLAVIX [Concomitant]
  7. PROSCAR [Concomitant]
  8. STATIN /00084401/ [Concomitant]

REACTIONS (1)
  - Coronary artery occlusion [None]
